FAERS Safety Report 12115173 (Version 1)
Quarter: 2016Q1

REPORT INFORMATION
  Report Type: Spontaneous
  Country: US (occurrence: None)
  Receive Date: 20160225
  Receipt Date: 20160225
  Transmission Date: 20160526
  Serious: Yes (Hospitalization)
  Sender: FDA-Public Use
  Company Number: None

PATIENT
  Age: 76 Year
  Sex: Male
  Weight: 68 kg

DRUGS (4)
  1. LEVOTHYROXINE. [Concomitant]
     Active Substance: LEVOTHYROXINE
  2. HYDROXYCHLOROQUINE, 400 MG PRASCO [Suspect]
     Active Substance: HYDROXYCHLOROQUINE
     Indication: PULMONARY MASS
     Route: 048
     Dates: start: 20160128, end: 20160210
  3. ASPIRIN. [Concomitant]
     Active Substance: ASPIRIN
  4. PEROSOL [Concomitant]

REACTIONS (5)
  - Post procedural complication [None]
  - Pneumothorax [None]
  - Pneumonia bacterial [None]
  - Bacterial sepsis [None]
  - Respiratory failure [None]

NARRATIVE: CASE EVENT DATE: 20160211
